FAERS Safety Report 7044036-3 (Version None)
Quarter: 2010Q4

REPORT INFORMATION
  Report Type: 
  Country: None (occurrence: None)
  Receive Date: 20101013
  Receipt Date: 20101013
  Transmission Date: 20110411
  Serious: No
  Sender: FDA-Public Use
  Company Number: None

PATIENT
  Age: 40 Year
  Sex: Female

DRUGS (1)
  1. OMNIPAQUE 300 [Suspect]
     Indication: ABDOMINAL PAIN UPPER
     Dosage: 100ML ONCE IV PUSH
     Route: 042

REACTIONS (5)
  - DYSPNOEA [None]
  - PHARYNGEAL OEDEMA [None]
  - PRURITUS [None]
  - URTICARIA [None]
  - WHEEZING [None]
